FAERS Safety Report 4687999-3 (Version None)
Quarter: 2005Q2

REPORT INFORMATION
  Report Type: 
  Country: None (occurrence: None)
  Receive Date: 20050608
  Receipt Date: 20050524
  Transmission Date: 20051028
  Serious: Yes (Hospitalization)
  Sender: FDA-Public Use
  Company Number: 20052372

PATIENT
  Age: 17 Year
  Sex: Male

DRUGS (1)
  1. LIORESAL [Suspect]
     Indication: MUSCLE SPASTICITY
     Dosage: MCG, DAILY, INTRATHECAL
     Route: 037

REACTIONS (10)
  - BLOOD PRESSURE DECREASED [None]
  - BLOOD TEST ABNORMAL [None]
  - CATHETER RELATED COMPLICATION [None]
  - DEVICE FAILURE [None]
  - DRUG ADMINISTRATION ERROR [None]
  - DRUG WITHDRAWAL SYNDROME [None]
  - HEART RATE INCREASED [None]
  - HYPERHIDROSIS [None]
  - INFECTION [None]
  - PAIN IN EXTREMITY [None]
